FAERS Safety Report 8481117-1 (Version None)
Quarter: 2012Q3

REPORT INFORMATION
  Report Type: 
  Country: None (occurrence: None)
  Receive Date: 20120702
  Receipt Date: 20120627
  Transmission Date: 20120928
  Serious: Yes (Hospitalization, Other)
  Sender: FDA-Public Use
  Company Number: PHEH2012US012797

PATIENT
  Age: 44 Year
  Sex: Female

DRUGS (8)
  1. ADVAIR DISKUS 100/50 [Suspect]
     Dosage: 1 PUFF
     Dates: start: 20110701, end: 20120201
  2. ADVAIR DISKUS 100/50 [Suspect]
     Indication: ASTHMA
     Dosage: 55/50 UG 1 PUFF BID
     Dates: start: 20110701, end: 20120531
  3. ASMANEX TWISTHALER [Suspect]
     Dates: end: 20110801
  4. ADVAIR DISKUS 100/50 [Suspect]
     Dosage: 45/21MCG,  2PUFFS BID
     Dates: start: 20120201, end: 20120531
  5. FLUTICASONE PROPIONATE [Concomitant]
     Dosage: 10 UG, UNK
     Dates: start: 20110701
  6. ASMANEX TWISTHALER [Suspect]
     Indication: ASTHMA
     Dates: end: 20110801
  7. INTERFERON [Concomitant]
  8. FORADIL [Suspect]
     Dates: end: 20110801

REACTIONS (7)
  - TRANSIENT ISCHAEMIC ATTACK [None]
  - COUGH [None]
  - APHONIA [None]
  - CANDIDIASIS [None]
  - WHEEZING [None]
  - SWOLLEN TONGUE [None]
  - GLOSSODYNIA [None]
